FAERS Safety Report 8374331-7 (Version None)
Quarter: 2012Q2

REPORT INFORMATION
  Report Type: 
  Country: None (occurrence: None)
  Receive Date: 20120521
  Receipt Date: 20120510
  Transmission Date: 20120825
  Serious: Yes (Hospitalization)
  Sender: FDA-Public Use
  Company Number: CA-ASTRAZENECA-2012SE28743

PATIENT
  Age: 37 Year
  Sex: Male

DRUGS (5)
  1. BISOPROLOL FUMARATE [Concomitant]
  2. BRILINTA [Suspect]
     Indication: CARDIOVASCULAR EVENT PROPHYLAXIS
     Route: 048
     Dates: start: 20120429
  3. ATORVASTATIN CALCIUM [Concomitant]
  4. PERINDOPRIL ERBUMINE [Concomitant]
  5. NICOTINE [Concomitant]

REACTIONS (1)
  - RASH [None]
